FAERS Safety Report 16192798 (Version 1)
Quarter: 2019Q2

REPORT INFORMATION
  Report Type: Spontaneous
  Country: CN (occurrence: CN)
  Receive Date: 20190412
  Receipt Date: 20190412
  Transmission Date: 20190711
  Serious: Yes (Hospitalization, Other)
  Sender: FDA-Public Use
  Company Number: CN-BAXTER-2019BAX007164

PATIENT
  Age: 33 Year
  Sex: Female
  Weight: 51 kg

DRUGS (10)
  1. 5% GLUCOSE  INJECTION [Suspect]
     Active Substance: DEXTROSE
     Indication: MEDICATION DILUTION
     Dosage: 5% GS 250 ML+ PIRARUBICIN 70 MG
     Route: 041
     Dates: start: 20190316, end: 20190316
  2. PIRARUBICIN HYDROCHLORIDE [Suspect]
     Active Substance: PIRARUBICIN HYDROCHLORIDE
     Indication: HODGKIN^S DISEASE RECURRENT
     Dosage: 5% GS 250 ML+ PIRARUBICIN 70 MG, AS PART OF CHOP THERAPY.
     Route: 041
     Dates: start: 20190316, end: 20190316
  3. CISPLATIN. [Suspect]
     Active Substance: CISPLATIN
     Indication: PRODUCT USED FOR UNKNOWN INDICATION
     Route: 065
  4. VINCRISTINE SULFATE. [Suspect]
     Active Substance: VINCRISTINE SULFATE
     Indication: HODGKIN^S DISEASE RECURRENT
     Dosage: AS PART OF CHOP THERAPY. 0.9% NS 50ML+ VINCRISTINE 2MG
     Route: 041
     Dates: start: 20190316, end: 20190316
  5. DEXAMETHASONE SODIUM PHOSPHATE. [Suspect]
     Active Substance: DEXAMETHASONE SODIUM PHOSPHATE
     Indication: HODGKIN^S DISEASE RECURRENT
     Dosage: AS PART OF CHOP THERAPY.
     Route: 042
     Dates: start: 20190316, end: 20190321
  6. ETOPOSIDE. [Suspect]
     Active Substance: ETOPOSIDE
     Indication: PRODUCT USED FOR UNKNOWN INDICATION
     Route: 065
  7. HOLOXAN [Suspect]
     Active Substance: IFOSFAMIDE
     Indication: PRODUCT USED FOR UNKNOWN INDICATION
     Route: 065
  8. 0.9% SODIUM CHLORIDE INJECTION [Suspect]
     Active Substance: SODIUM CHLORIDE
     Dosage: 0.9% NS 50ML+ VINCRISTINE 2MG
     Route: 041
     Dates: start: 20190316, end: 20190316
  9. 0.9% SODIUM CHLORIDE INJECTION [Suspect]
     Active Substance: SODIUM CHLORIDE
     Indication: MEDICATION DILUTION
     Dosage: CYCLOPHOSPHAMIDE DILUTED WITH 0.9% NS
     Route: 041
     Dates: start: 20190316, end: 20190318
  10. ENDOXAN [Suspect]
     Active Substance: CYCLOPHOSPHAMIDE
     Indication: HODGKIN^S DISEASE RECURRENT
     Dosage: CYCLOPHOSPHAMIDE DILUTED WITH 0.9% NS, AS PART OF CHOP THERAPY.
     Route: 041
     Dates: start: 20190316, end: 20190318

REACTIONS (2)
  - Bone marrow failure [Recovering/Resolving]
  - Bone marrow failure [Recovered/Resolved]

NARRATIVE: CASE EVENT DATE: 20190326
